FAERS Safety Report 15292173 (Version 1)
Quarter: 2018Q3

REPORT INFORMATION
  Report Type: Spontaneous
  Country: US (occurrence: US)
  Receive Date: 20180806
  Receipt Date: 20180806
  Transmission Date: 20181010
  Serious: Yes (Other)
  Sender: FDA-Public Use
  Company Number: None

PATIENT
  Age: 28 Year
  Sex: Male
  Weight: 85.5 kg

DRUGS (2)
  1. RISPERDAL CONSTA [Suspect]
     Active Substance: RISPERIDONE
     Indication: SCHIZOPHRENIA
     Dates: start: 20160806
  2. HALDOL [Suspect]
     Active Substance: HALOPERIDOL

REACTIONS (4)
  - Gynaecomastia [None]
  - Heart rate increased [None]
  - Insomnia [None]
  - Fat tissue increased [None]

NARRATIVE: CASE EVENT DATE: 20180806
